FAERS Safety Report 9925865 (Version 2)
Quarter: 2014Q2

REPORT INFORMATION
  Report Type: Report from Study
  Country: JP (occurrence: JP)
  Receive Date: 20140226
  Receipt Date: 20140523
  Transmission Date: 20141212
  Serious: Yes (Hospitalization)
  Sender: FDA-Public Use
  Company Number: JP-TAKEDA-2014TJP001839

PATIENT
  Age: 64 Year
  Sex: Male
  Weight: 88.4 kg

DRUGS (12)
  1. ALOGLIPTIN [Suspect]
     Indication: TYPE 2 DIABETES MELLITUS
     Dosage: 25 MG, QD
     Route: 048
     Dates: start: 20121124
  2. PIOGLITAZONE HYDROCHLORIDE [Suspect]
     Indication: TYPE 2 DIABETES MELLITUS
     Dosage: 15 MG, 1 DAYS
     Route: 048
  3. GLIMEPIRIDE [Concomitant]
     Indication: TYPE 2 DIABETES MELLITUS
     Dosage: 2 MG, 1 DAYS
     Route: 048
     Dates: end: 20130916
  4. GLIMEPIRIDE [Concomitant]
     Dosage: 1 MG, 1 DAYS
     Route: 048
     Dates: start: 20130917, end: 20131017
  5. LIVALO [Concomitant]
     Dosage: 1 MG, 1 DAYS
     Route: 048
  6. CARDENALIN [Concomitant]
     Dosage: 2 MG, 1 DAYS
     Route: 048
  7. FEBURIC [Concomitant]
     Dosage: 10 MG, 1 DAYS
     Route: 048
  8. ADALAT CR [Concomitant]
     Dosage: 40 MG, 1 DAYS
     Route: 048
  9. OLMETEC [Concomitant]
     Dosage: 40 MG, 1 DAYS
     Route: 048
     Dates: end: 20130801
  10. EPALRESTAT [Concomitant]
     Dosage: 150 MG, 1 DAYS
     Route: 048
     Dates: end: 20131017
  11. RABEPRAZOLE SODIUM [Concomitant]
     Dosage: 10 MG, 1 DAYS
     Route: 048
     Dates: start: 20130520
  12. NITROPEN [Concomitant]
     Indication: ANGINA PECTORIS
     Dosage: 0.3 MG, UNK
     Route: 060
     Dates: start: 20130801

REACTIONS (1)
  - Hyperkalaemia [Recovered/Resolved]
